FAERS Safety Report 18335829 (Version 1)
Quarter: 2020Q4

REPORT INFORMATION
  Report Type: Spontaneous
  Country: BR (occurrence: BR)
  Receive Date: 20201001
  Receipt Date: 20201001
  Transmission Date: 20210113
  Serious: Yes (Other)
  Sender: FDA-Public Use
  Company Number: BR-LUPIN PHARMACEUTICALS INC.-2020-05919

PATIENT
  Age: 67 Year
  Sex: Female

DRUGS (1)
  1. METRONIDAZOLE. [Suspect]
     Active Substance: METRONIDAZOLE
     Indication: LIVER ABSCESS
     Dosage: CONTINUOUSLY FOR 65 DAYS
     Route: 065

REACTIONS (4)
  - Encephalopathy [Recovered/Resolved]
  - Toxicity to various agents [Recovering/Resolving]
  - Nystagmus [Unknown]
  - Neuropathy peripheral [Recovered/Resolved]
